FAERS Safety Report 21998388 (Version 1)
Quarter: 2023Q1

REPORT INFORMATION
  Report Type: Report from Study
  Country: US (occurrence: US)
  Receive Date: 20230216
  Receipt Date: 20230216
  Transmission Date: 20230418
  Serious: Yes (Other)
  Sender: FDA-Public Use
  Company Number: US-ABBVIE-4307705

PATIENT
  Age: 58 Year
  Sex: Male

DRUGS (3)
  1. SKYRIZI [Suspect]
     Active Substance: RISANKIZUMAB-RZAA
     Indication: Colitis ulcerative
     Dosage: 360MG/2.4M?WEEK 4
     Route: 058
  2. SKYRIZI [Suspect]
     Active Substance: RISANKIZUMAB-RZAA
     Dosage: WEEK 0
     Route: 042
     Dates: start: 20221001, end: 20221001
  3. SKYRIZI [Suspect]
     Active Substance: RISANKIZUMAB-RZAA
     Dosage: DURATION TEXT: FROM WEEK 12
     Route: 042

REACTIONS (2)
  - Surgery [Unknown]
  - Off label use [Unknown]

NARRATIVE: CASE EVENT DATE: 20221001
